FAERS Safety Report 6104098-4 (Version None)
Quarter: 2009Q1

REPORT INFORMATION
  Report Type: 
  Country: None (occurrence: None)
  Receive Date: 20090305
  Receipt Date: 20090224
  Transmission Date: 20090719
  Serious: Yes (Other)
  Sender: FDA-Public Use
  Company Number: CN-PFIZER INC-2009167798

PATIENT

DRUGS (2)
  1. ZYVOX [Suspect]
     Dosage: 600 MG, 2X/DAY
     Route: 042
  2. TEICOPLANIN [Concomitant]

REACTIONS (1)
  - PLATELET COUNT DECREASED [None]
